FAERS Safety Report 21935743 (Version 1)
Quarter: 2023Q1

REPORT INFORMATION
  Report Type: Spontaneous
  Country: US (occurrence: None)
  Receive Date: 20230131
  Receipt Date: 20230131
  Transmission Date: 20230418
  Serious: Yes (Hospitalization)
  Sender: FDA-Public Use
  Company Number: None

PATIENT
  Sex: Male
  Weight: 89.9 kg

DRUGS (3)
  1. ACALABRUTINIB [Suspect]
     Active Substance: ACALABRUTINIB
     Dates: end: 20230126
  2. BENDAMUSTINE HYDROCHLORIDE [Suspect]
     Active Substance: BENDAMUSTINE HYDROCHLORIDE
     Dates: end: 20230113
  3. RITUXIMAB [Suspect]
     Active Substance: RITUXIMAB
     Dates: end: 20230112

REACTIONS (5)
  - Therapy interrupted [None]
  - Rash maculo-papular [None]
  - Acute kidney injury [None]
  - Clostridium test positive [None]
  - Urinary tract infection [None]

NARRATIVE: CASE EVENT DATE: 20230127
